FAERS Safety Report 17846378 (Version 1)
Quarter: 2020Q2

REPORT INFORMATION
  Report Type: Spontaneous
  Country: US (occurrence: US)
  Receive Date: 20200601
  Receipt Date: 20200601
  Transmission Date: 20200714
  Serious: Yes (Hospitalization)
  Sender: FDA-Public Use
  Company Number: None

PATIENT
  Age: 32 Year
  Sex: Female
  Weight: 81 kg

DRUGS (1)
  1. PROCHLORPERAZINE. [Suspect]
     Active Substance: PROCHLORPERAZINE
     Indication: HEADACHE
     Dates: start: 20200525, end: 20200525

REACTIONS (3)
  - Drug screen positive [None]
  - Disorientation [None]
  - Restlessness [None]

NARRATIVE: CASE EVENT DATE: 20200525
